FAERS Safety Report 7197367-0 (Version None)
Quarter: 2010Q4

REPORT INFORMATION
  Report Type: 
  Country: None (occurrence: None)
  Receive Date: 20101213
  Receipt Date: 20101207
  Transmission Date: 20110411
  Serious: Yes (Other)
  Sender: FDA-Public Use
  Company Number: 2010SP062844

PATIENT
  Age: 37 Year
  Sex: Female

DRUGS (4)
  1. REMERON [Suspect]
     Indication: PRODUCT USED FOR UNKNOWN INDICATION
     Dosage: 30 MG;QD;PO ; PO
     Route: 048
  2. CELESTAMINE TAB [Suspect]
     Indication: SEASONAL ALLERGY
     Dosage: PO
     Route: 048
     Dates: start: 20101001
  3. ROHYPNOL (FLUNITRAZEPAM) [Suspect]
     Indication: PRODUCT USED FOR UNKNOWN INDICATION
     Dosage: 3 MG;QD;PO
     Route: 048
     Dates: start: 20100101
  4. DORAL [Suspect]
     Indication: PRODUCT USED FOR UNKNOWN INDICATION
     Dosage: 20 MG;QD;PO
     Route: 048
     Dates: start: 20100101

REACTIONS (1)
  - MEMORY IMPAIRMENT [None]
